FAERS Safety Report 7967581-2 (Version None)
Quarter: 2011Q4

REPORT INFORMATION
  Report Type: 
  Country: None (occurrence: None)
  Receive Date: 20111207
  Receipt Date: 20111128
  Transmission Date: 20120403
  Serious: Yes (Other)
  Sender: FDA-Public Use
  Company Number: 126948

PATIENT
  Age: 60 Year
  Sex: Female
  Weight: 49.8957 kg

DRUGS (8)
  1. ERYTHROMYCIN [Concomitant]
  2. HYDROXYUREA [Concomitant]
  3. AMIKACIN SULFATE [Suspect]
     Indication: MYCOPLASMA INFECTION
     Dosage: 250MG DILUTED IN 3ML SALINE, INHALED VIA NEBU
     Route: 055
     Dates: start: 20110601
  4. NADOLOL [Concomitant]
  5. WARFARIN SODIUM [Concomitant]
  6. ETHAMBUTOL HYDROCHLORIDE [Concomitant]
  7. TACROLIUMUS [Concomitant]
  8. MYCOPHENYLATE MOFETIL [Concomitant]

REACTIONS (7)
  - MEDICATION ERROR [None]
  - OROPHARYNGEAL PAIN [None]
  - DRY THROAT [None]
  - CANDIDIASIS [None]
  - TOOTH DISCOLOURATION [None]
  - DYSPHONIA [None]
  - OFF LABEL USE [None]
